FAERS Safety Report 13278435 (Version 1)
Quarter: 2017Q1

REPORT INFORMATION
  Report Type: Spontaneous
  Country: AU (occurrence: AU)
  Receive Date: 20170228
  Receipt Date: 20170228
  Transmission Date: 20170428
  Serious: Yes (Other)
  Sender: FDA-Public Use
  Company Number: PHHY2017AU028417

PATIENT
  Sex: Female

DRUGS (1)
  1. ESTRADOT [Suspect]
     Active Substance: ESTRADIOL
     Indication: PRODUCT USED FOR UNKNOWN INDICATION
     Dosage: 0.5 DF, (HALVED 50MG)
     Route: 062

REACTIONS (8)
  - Hot flush [Unknown]
  - Leukaemia [Unknown]
  - Wrong technique in product usage process [Unknown]
  - Headache [Unknown]
  - Feeling abnormal [Unknown]
  - Thyroid function test abnormal [Unknown]
  - Malaise [Unknown]
  - Drug prescribing error [Unknown]
